FAERS Safety Report 7211907-4 (Version None)
Quarter: 2011Q1

REPORT INFORMATION
  Report Type: 
  Country: None (occurrence: None)
  Receive Date: 20110106
  Receipt Date: 20101227
  Transmission Date: 20110831
  Serious: No
  Sender: FDA-Public Use
  Company Number: US-BIOGENIDEC-2010BI033111

PATIENT
  Age: 53 Year
  Sex: Female

DRUGS (1)
  1. TYSABRI [Suspect]
     Indication: MULTIPLE SCLEROSIS
     Route: 042
     Dates: start: 20080422

REACTIONS (6)
  - MUSCULAR WEAKNESS [None]
  - BLOOD CHOLESTEROL INCREASED [None]
  - PARAESTHESIA [None]
  - BALANCE DISORDER [None]
  - ALOPECIA [None]
  - ARTHRALGIA [None]
